FAERS Safety Report 4827427-8 (Version None)
Quarter: 2005Q4

REPORT INFORMATION
  Report Type: 
  Country: None (occurrence: None)
  Receive Date: 20051114
  Receipt Date: 20051114
  Transmission Date: 20060501
  Serious: No
  Sender: FDA-Public Use
  Company Number: None

PATIENT

DRUGS (2)
  1. SYNTHROID [Suspect]
     Dosage: TABLET
  2. SYNTHROID [Suspect]
     Dosage: TABLET

REACTIONS (6)
  - BLOOD PRESSURE INCREASED [None]
  - DRUG DISPENSING ERROR [None]
  - HEART RATE INCREASED [None]
  - HEART RATE IRREGULAR [None]
  - MEDICATION ERROR [None]
  - WRONG DRUG ADMINISTERED [None]
